FAERS Safety Report 6707857-X (Version None)
Quarter: 2010Q2

REPORT INFORMATION
  Report Type: 
  Country: None (occurrence: None)
  Receive Date: 20100503
  Receipt Date: 20090608
  Transmission Date: 20101027
  Serious: No
  Sender: FDA-Public Use
  Company Number: US-ASTRAZENECA-2009UW14684

PATIENT
  Age: 83 Year
  Sex: Female
  Weight: 57.2 kg

DRUGS (5)
  1. NEXIUM [Suspect]
     Route: 048
     Dates: start: 20090601
  2. LEVBID [Concomitant]
     Indication: CARDIAC DISORDER
  3. REGLAN [Concomitant]
     Indication: GASTRIC DISORDER
  4. CARDIA XT [Concomitant]
  5. XANAX [Concomitant]
     Indication: INSOMNIA

REACTIONS (4)
  - ABDOMINAL PAIN [None]
  - BLADDER DISCOMFORT [None]
  - DRY MOUTH [None]
  - UNEVALUABLE EVENT [None]
